FAERS Safety Report 8378312-9 (Version None)
Quarter: 2012Q2

REPORT INFORMATION
  Report Type: 
  Country: None (occurrence: None)
  Receive Date: 20120522
  Receipt Date: 20120516
  Transmission Date: 20120825
  Serious: No
  Sender: FDA-Public Use
  Company Number: JP-PFIZER INC-2012112478

PATIENT
  Age: 57 Year
  Sex: Female

DRUGS (2)
  1. LYRICA [Suspect]
     Dosage: 300 MG/DAY
  2. LYRICA [Suspect]
     Indication: PAIN
     Dosage: 75 MG, 2X/DAY AFTER LUNCH AND AT BEDTIME
     Route: 048

REACTIONS (3)
  - SENSATION OF HEAVINESS [None]
  - DIZZINESS [None]
  - LIMB DISCOMFORT [None]
